FAERS Safety Report 9304399 (Version 4)
Quarter: 2014Q1

REPORT INFORMATION
  Report Type: Report from Study
  Country: US (occurrence: US)
  Receive Date: 20130522
  Receipt Date: 20140227
  Transmission Date: 20141002
  Serious: Yes (Hospitalization)
  Sender: FDA-Public Use
  Company Number: PHHO2013US006755

PATIENT
  Age: 52 Year
  Sex: Male

DRUGS (20)
  1. BLINDED AIN457 [Suspect]
     Indication: RHEUMATOID ARTHRITIS
     Dosage: CODE NOT BROKEN
     Route: 058
     Dates: start: 20130415, end: 20130430
  2. BLINDED NO TREATMENT RECEIVED [Suspect]
     Indication: RHEUMATOID ARTHRITIS
     Dosage: CODE NOT BROKEN
     Route: 058
     Dates: start: 20130415, end: 20130430
  3. BLINDED PLACEBO [Suspect]
     Indication: RHEUMATOID ARTHRITIS
     Dosage: CODE NOT BROKEN
     Route: 058
     Dates: start: 20130415, end: 20130430
  4. BLINDED AIN457 [Suspect]
     Dosage: CODE NOT BROKEN
     Route: 058
     Dates: start: 20130611
  5. BLINDED NO TREATMENT RECEIVED [Suspect]
     Dosage: CODE NOT BROKEN
     Route: 058
     Dates: start: 20130611
  6. BLINDED PLACEBO [Suspect]
     Dosage: CODE NOT BROKEN
     Route: 058
     Dates: start: 20130611
  7. METFORMIN [Suspect]
     Indication: DIABETES MELLITUS
     Dosage: 1000 MG, QD
     Route: 048
  8. LISINOPRIL+HCT [Suspect]
     Indication: HYPERTENSION
     Dosage: 20- 12.5 MG BID
     Route: 048
     Dates: start: 20000925
  9. METHOTREXATE [Concomitant]
     Indication: RHEUMATOID ARTHRITIS
     Dosage: 25 MG, QWK
     Route: 048
     Dates: start: 20121220
  10. PREDNISONE [Concomitant]
     Indication: RHEUMATOID ARTHRITIS
     Dosage: 10 MG, QD
     Route: 048
     Dates: start: 20130213
  11. FOLIC ACID [Concomitant]
     Indication: SUPPLEMENTATION THERAPY
     Dosage: 1 MG, QD
     Route: 048
     Dates: start: 20121220
  12. MELOXICAM [Concomitant]
     Indication: RHEUMATOID ARTHRITIS
     Dosage: 7.5 MG, QD
     Route: 048
     Dates: start: 20130415
  13. OXYCODONE [Concomitant]
     Indication: RHEUMATOID ARTHRITIS
     Dosage: 10 MG, QD
     Route: 048
     Dates: start: 20120730
  14. HUMALOG [Concomitant]
     Indication: DIABETES MELLITUS
     Dosage: 100 U/ML, PRN
     Route: 058
  15. LANTUS [Concomitant]
     Indication: DIABETES MELLITUS
     Dosage: 15 U, QD
     Route: 058
  16. LIPITOR [Concomitant]
     Indication: HYPERTENSION
     Dosage: 10 MG, QD
     Route: 048
     Dates: start: 20000925
  17. METOCLOPRAMIDE HCL [Concomitant]
     Indication: COLITIS ULCERATIVE
     Dosage: 10 MG, QID
     Route: 048
     Dates: start: 20111222
  18. TAMSULOSIN [Concomitant]
     Indication: PROSTATOMEGALY
     Dosage: 0.4 MG, QD
     Route: 048
  19. OMEPRAZOLE [Concomitant]
     Indication: GASTROOESOPHAGEAL REFLUX DISEASE
     Dosage: 20 MG, QD
     Route: 048
     Dates: start: 20111201
  20. LYRICA [Concomitant]
     Indication: PAIN
     Dosage: 150 MG, QD
     Route: 048
     Dates: start: 201004

REACTIONS (2)
  - Adrenal insufficiency [Recovered/Resolved]
  - Renal failure acute [Recovered/Resolved]
